FAERS Safety Report 7548766-6 (Version None)
Quarter: 2011Q2

REPORT INFORMATION
  Report Type: 
  Country: None (occurrence: None)
  Receive Date: 20110615
  Receipt Date: 20110607
  Transmission Date: 20111010
  Serious: Yes (Hospitalization, Other)
  Sender: FDA-Public Use
  Company Number: ES-ROXANE LABORATORIES, INC.-2011-RO-00784RO

PATIENT
  Age: 82 Year
  Sex: Female

DRUGS (7)
  1. BORTEZOMIB [Suspect]
     Indication: MULTIPLE MYELOMA
  2. MELPHALAN HYDROCHLORIDE [Suspect]
     Indication: MULTIPLE MYELOMA
  3. LENALIDOMIDE [Suspect]
     Dosage: 10 MG
  4. DEXAMETHASONE [Suspect]
     Indication: MULTIPLE MYELOMA
     Dosage: 20 MG
     Route: 048
  5. LENALIDOMIDE [Suspect]
     Dosage: 15 MG
  6. PREDNISONE [Suspect]
     Indication: MULTIPLE MYELOMA
  7. LENALIDOMIDE [Suspect]
     Indication: MULTIPLE MYELOMA
     Dosage: 25 MG

REACTIONS (5)
  - ASTHENIA [None]
  - DRUG INEFFECTIVE [None]
  - ANAEMIA [None]
  - DEEP VEIN THROMBOSIS [None]
  - NEUTROPENIA [None]
